FAERS Safety Report 5504550-6 (Version None)
Quarter: 2007Q4

REPORT INFORMATION
  Report Type: 
  Country: None (occurrence: None)
  Receive Date: 20071030
  Receipt Date: 20071018
  Transmission Date: 20080405
  Serious: Yes (Other)
  Sender: FDA-Public Use
  Company Number: 310003N07JPN

PATIENT
  Age: 18 Year
  Sex: Male
  Weight: 70 kg

DRUGS (5)
  1. GONAL-F [Suspect]
     Dosage: 75, SUBCUTANEOUS
     Route: 058
     Dates: start: 20070401
  2. CHORIONIC GONADORTOPIN INJ [Suspect]
     Dosage: 5000, SUBCUTANEOUS
     Route: 058
     Dates: start: 20070401
  3. COTRIL (HYDROCORTISONE /00028601/) [Concomitant]
  4. LEVOTHYROXINE SODIUM [Concomitant]
  5. DESMOPRESSIN ACETATE [Concomitant]

REACTIONS (5)
  - ASTHMA [None]
  - CHEST DISCOMFORT [None]
  - DYSPNOEA [None]
  - HEADACHE [None]
  - NAUSEA [None]
